FAERS Safety Report 8582976-4 (Version None)
Quarter: 2012Q3

REPORT INFORMATION
  Report Type: 
  Country: None (occurrence: None)
  Receive Date: 20120727
  Receipt Date: 20120719
  Transmission Date: 20120928
  Serious: Yes (Hospitalization, Other)
  Sender: FDA-Public Use
  Company Number: US-2012-10990

PATIENT
  Age: 9 Year
  Sex: Female

DRUGS (9)
  1. AZATHIOPRINE (AZATHIOPRINE0 [Concomitant]
  2. BUSULFEX [Suspect]
     Indication: BONE MARROW CONDITIONING REGIMEN
     Dosage: 3.2 MG/KG, DAILY DOSE, DAYS 9 TO 6, INTRAVENOUS
     Route: 042
  3. ANTI-THYMOCYTE GLOBULIN RABBIT NOS [Suspect]
     Indication: BONE MARROW CONDITIONING REGIMEN
     Dosage: 2.5 MG/KG/D ON DAYS -4 TO  (10MG/KG); 2.5 MG/KG/D ON DAYS - 4 TO -2
  4. TREOSULFAN (TREOSULFAN) [Concomitant]
  5. ACYCLOVIR [Concomitant]
  6. HYDROXYUREA [Concomitant]
  7. FLUDARABINE PHOSPHATE [Suspect]
     Indication: BONE MARROW CONDITIONING REGIMEN
     Dosage: 30 MG/M2/D ON DAYS 0 TO -5 (180MG/M^2); 40 MG/D/D ON DAYS -5 TO -3
  8. THIOTEPA [Suspect]
     Indication: BONE MARROW CONDITIONING REGIMEN
     Dosage: 5MG/KG/D ON DAYS; 8 MG/KG/D ON DAY - 7
  9. CYCLOSPORINE [Concomitant]

REACTIONS (5)
  - TRANSPLANT FAILURE [None]
  - POST TRANSPLANT LYMPHOPROLIFERATIVE DISORDER [None]
  - PLEURAL EFFUSION [None]
  - GUILLAIN-BARRE SYNDROME [None]
  - PERICARDITIS [None]
